FAERS Safety Report 4990431-3 (Version None)
Quarter: 2006Q2

REPORT INFORMATION
  Report Type: 
  Country: None (occurrence: None)
  Receive Date: 20060427
  Receipt Date: 20060417
  Transmission Date: 20061013
  Serious: Yes (Hospitalization, Other)
  Sender: FDA-Public Use
  Company Number: 2006052476

PATIENT
  Age: 35 Year
  Sex: Male
  Weight: 86.002 kg

DRUGS (5)
  1. NEURONTIN [Suspect]
     Indication: MIGRAINE
     Dosage: 600 MG ORAL
     Route: 048
     Dates: start: 20050708
  2. BETASERON [Suspect]
     Indication: MULTIPLE SCLEROSIS
     Dosage: 8 MILLION IU (2 D) SUBCUTANEOUS
     Route: 058
     Dates: start: 20050415
  3. PREDNISONE TAB [Concomitant]
  4. ADVIL [Concomitant]
  5. TYLENOL [Concomitant]

REACTIONS (13)
  - AMNESIA [None]
  - ASTHENIA [None]
  - CONDITION AGGRAVATED [None]
  - DYSARTHRIA [None]
  - FALL [None]
  - HEADACHE [None]
  - HYPOAESTHESIA [None]
  - INTERVERTEBRAL DISC PROTRUSION [None]
  - MIGRAINE [None]
  - MULTIPLE SCLEROSIS RELAPSE [None]
  - NECK PAIN [None]
  - PAIN [None]
  - PARAESTHESIA [None]
